FAERS Safety Report 7652804-X (Version None)
Quarter: 2011Q3

REPORT INFORMATION
  Report Type: 
  Country: None (occurrence: None)
  Receive Date: 20110803
  Receipt Date: 20110801
  Transmission Date: 20111222
  Serious: Yes (Hospitalization)
  Sender: FDA-Public Use
  Company Number: GB-ABBOTT-11P-167-0843313-00

PATIENT
  Age: 67 Year
  Weight: 78.3 kg

DRUGS (8)
  1. SIMVASTATIN [Concomitant]
     Indication: HYPERCHOLESTEROLAEMIA
     Route: 048
  2. HUMIRA [Suspect]
     Indication: RHEUMATOID ARTHRITIS
     Route: 058
     Dates: start: 20090101
  3. LANSOPRAZOLE [Concomitant]
     Indication: GASTRITIS
     Route: 048
  4. PREGBALIN [Concomitant]
     Indication: PAIN
     Dosage: TAKEN AT NIGHT DAILY
     Route: 048
     Dates: start: 20100101
  5. ASPIRIN [Concomitant]
     Indication: ANGINA PECTORIS
     Route: 048
  6. DIAZEPAM [Concomitant]
     Indication: ANXIETY
     Route: 048
  7. LOSARTAN POTASSIUM [Concomitant]
     Indication: HYPERTENSION
     Route: 048
  8. PREDNISOLONE [Concomitant]
     Indication: RHEUMATOID ARTHRITIS
     Route: 048

REACTIONS (5)
  - SEPSIS [None]
  - DEHYDRATION [None]
  - RENAL FAILURE ACUTE [None]
  - CAMPYLOBACTER GASTROENTERITIS [None]
  - YERSINIA INFECTION [None]
